FAERS Safety Report 14371711 (Version 2)
Quarter: 2019Q3

REPORT INFORMATION
  Report Type: Report from Study
  Country: CA (occurrence: CA)
  Receive Date: 20180110
  Receipt Date: 20190812
  Transmission Date: 20191004
  Serious: Yes (Other)
  Sender: FDA-Public Use
  Company Number: CA-HLSUS-2018-CA-000011

PATIENT
  Sex: Female

DRUGS (1)
  1. CLOZARIL [Suspect]
     Active Substance: CLOZAPINE
     Route: 048
     Dates: start: 20070112

REACTIONS (10)
  - Agitation [Unknown]
  - Psychiatric symptom [Unknown]
  - Nausea [Unknown]
  - Pyrexia [Unknown]
  - Pain [Unknown]
  - Insomnia [Unknown]
  - Constipation [Unknown]
  - Dystonia [Unknown]
  - Transient ischaemic attack [Unknown]
  - Dry mouth [Unknown]
